FAERS Safety Report 15903450 (Version 2)
Quarter: 2019Q1

REPORT INFORMATION
  Report Type: Spontaneous
  Country: US (occurrence: US)
  Receive Date: 20190203
  Receipt Date: 20190203
  Transmission Date: 20190417
  Serious: Yes (Hospitalization)
  Sender: FDA-Public Use
  Company Number: US-CELGENEUS-USA-20190109004

PATIENT
  Age: 81 Year
  Sex: Male

DRUGS (2)
  1. POMALYST [Suspect]
     Active Substance: POMALIDOMIDE
     Indication: PLASMA CELL MYELOMA
     Dosage: 3 MILLIGRAM
     Route: 048
     Dates: start: 20181101, end: 20190114
  2. POMALYST [Suspect]
     Active Substance: POMALIDOMIDE
     Dosage: 2 MILLIGRAM
     Route: 048
     Dates: start: 20190125

REACTIONS (5)
  - Dehydration [Recovered/Resolved]
  - Fall [Recovered/Resolved]
  - Diarrhoea [Recovered/Resolved]
  - Influenza [Recovered/Resolved]
  - Vomiting [Recovered/Resolved]

NARRATIVE: CASE EVENT DATE: 20190114
